FAERS Safety Report 17492654 (Version 2)
Quarter: 2021Q1

REPORT INFORMATION
  Report Type: Spontaneous
  Country: US (occurrence: US)
  Receive Date: 20200304
  Receipt Date: 20210317
  Transmission Date: 20210419
  Serious: Yes (Life-Threatening, Other)
  Sender: FDA-Public Use
  Company Number: US-AMGEN-USASP2020033310

PATIENT

DRUGS (1)
  1. PEGFILGRASTIM [Suspect]
     Active Substance: PEGFILGRASTIM
     Indication: PROPHYLAXIS
     Dosage: 6 MILLIGRAM (WITHIN 1 HR OF COMPLETION OF SYSTEMIC AGENTS)
     Route: 065

REACTIONS (4)
  - Infection [Unknown]
  - Bone pain [Unknown]
  - Neutropenia [Unknown]
  - Off label use [Unknown]
